FAERS Safety Report 7483316-4 (Version None)
Quarter: 2011Q2

REPORT INFORMATION
  Report Type: 
  Country: None (occurrence: None)
  Receive Date: 20110509
  Receipt Date: 20110422
  Transmission Date: 20111010
  Serious: Yes (Other)
  Sender: FDA-Public Use
  Company Number: AUR-APL-2011-01480

PATIENT
  Age: 57 Year
  Sex: Female

DRUGS (3)
  1. ATENOLOL [Suspect]
  2. METFORMIN HCL [Suspect]
  3. JANUMET [Suspect]

REACTIONS (1)
  - CEREBROVASCULAR ACCIDENT [None]
